FAERS Safety Report 7171439-9 (Version None)
Quarter: 2010Q4

REPORT INFORMATION
  Report Type: 
  Country: None (occurrence: None)
  Receive Date: 20101217
  Receipt Date: 20101208
  Transmission Date: 20110411
  Serious: Yes (Other)
  Sender: FDA-Public Use
  Company Number: US-ABBOTT-10P-163-0690570-00

PATIENT
  Sex: Female
  Weight: 50.848 kg

DRUGS (4)
  1. HUMIRA [Suspect]
     Indication: ANKYLOSING SPONDYLITIS
     Route: 058
     Dates: start: 20100901, end: 20101001
  2. NEURONTIN [Concomitant]
     Indication: PAIN IN EXTREMITY
  3. PROVENTIL [Concomitant]
     Indication: ASTHMA
  4. FLOVENT [Concomitant]
     Indication: ASTHMA

REACTIONS (2)
  - NEURALGIA [None]
  - URINARY TRACT INFECTION [None]
